FAERS Safety Report 16666189 (Version 1)
Quarter: 2019Q3

REPORT INFORMATION
  Report Type: Spontaneous
  Country: GB (occurrence: GB)
  Receive Date: 20190805
  Receipt Date: 20190805
  Transmission Date: 20191004
  Serious: Yes (Other)
  Sender: FDA-Public Use
  Company Number: GB-UCBSA-2019032776

PATIENT
  Sex: Male

DRUGS (1)
  1. VIRIDAL DUO [Suspect]
     Active Substance: ALPROSTADIL
     Indication: PRODUCT USED FOR UNKNOWN INDICATION
     Dosage: 40 MICROGRAM, UNK
     Dates: start: 2017

REACTIONS (4)
  - Gait disturbance [Not Recovered/Not Resolved]
  - Parkinsonism [Not Recovered/Not Resolved]
  - Withdrawal syndrome [Unknown]
  - Balance disorder [Not Recovered/Not Resolved]

NARRATIVE: CASE EVENT DATE: 2019
